FAERS Safety Report 6604152-4 (Version None)
Quarter: 2010Q1

REPORT INFORMATION
  Report Type: 
  Country: None (occurrence: None)
  Receive Date: 20100226
  Receipt Date: 20090610
  Transmission Date: 20100710
  Serious: No
  Sender: FDA-Public Use
  Company Number: A0790149A

PATIENT
  Age: 18 Year
  Sex: Male

DRUGS (5)
  1. LAMICTAL CD [Suspect]
     Indication: BIPOLAR DISORDER
     Dosage: 100MG PER DAY
     Route: 048
     Dates: start: 20071201
  2. SEROQUEL [Concomitant]
  3. LITHIUM [Concomitant]
  4. RESPERIDOL [Concomitant]
  5. TRAZODONE HCL [Concomitant]

REACTIONS (2)
  - RASH [None]
  - TINEA INFECTION [None]
